FAERS Safety Report 21056528 (Version 2)
Quarter: 2022Q4

REPORT INFORMATION
  Report Type: Spontaneous
  Country: US (occurrence: US)
  Receive Date: 20220708
  Receipt Date: 20221006
  Transmission Date: 20230113
  Serious: No
  Sender: FDA-Public Use
  Company Number: US-ALLERGAN-2211732US

PATIENT
  Age: 55 Year
  Sex: Female
  Weight: 52.163 kg

DRUGS (27)
  1. QULIPTA [Suspect]
     Active Substance: ATOGEPANT
     Indication: Migraine
     Dosage: 60 MG, QD
     Route: 048
     Dates: start: 20220425
  2. QULIPTA [Suspect]
     Active Substance: ATOGEPANT
     Dosage: 60 MG, QD
     Route: 048
     Dates: start: 202202, end: 20220326
  3. QULIPTA [Suspect]
     Active Substance: ATOGEPANT
     Dosage: 60 MG, QD
     Route: 048
     Dates: start: 202110, end: 202201
  4. ADDERALL [Concomitant]
     Active Substance: AMPHETAMINE ASPARTATE\AMPHETAMINE SULFATE\DEXTROAMPHETAMINE SACCHARATE\DEXTROAMPHETAMINE SULFATE
     Indication: Attention deficit hyperactivity disorder
  5. ADDERALL XR [Concomitant]
     Active Substance: AMPHETAMINE ASPARTATE\AMPHETAMINE SULFATE\DEXTROAMPHETAMINE SACCHARATE\DEXTROAMPHETAMINE SULFATE
     Indication: Attention deficit hyperactivity disorder
     Dosage: 50 MG, QD
  6. TROKENDI XR [Concomitant]
     Active Substance: TOPIRAMATE
     Indication: Migraine
  7. DIAZEPAM [Concomitant]
     Active Substance: DIAZEPAM
     Indication: Muscle spasms
  8. DIAZEPAM [Concomitant]
     Active Substance: DIAZEPAM
     Indication: Anxiety
  9. PROPANOLOL [PROPRANOLOL HYDROCHLORIDE] [Concomitant]
     Indication: Tremor
  10. BUPROPION HYDROCHLORIDE [Concomitant]
     Active Substance: BUPROPION HYDROCHLORIDE
     Indication: Depression
  11. CHLORPROMAZINE [Concomitant]
     Active Substance: CHLORPROMAZINE
     Indication: Sleep disorder
  12. BUDESONIDE [Concomitant]
     Active Substance: BUDESONIDE
     Indication: Colitis ulcerative
  13. DULOXETINE [Concomitant]
     Active Substance: DULOXETINE
     Indication: Depression
  14. GABAPENTIN [Concomitant]
     Active Substance: GABAPENTIN
     Indication: Sciatica
  15. OMEPRAZOLE [Concomitant]
     Active Substance: OMEPRAZOLE
     Indication: Gastrooesophageal cancer recurrent
  16. ESTRADIOL TRANSDERMAL SYSTEM [Concomitant]
     Active Substance: ESTRADIOL
     Indication: Hot flush
  17. NABUMETONE [Concomitant]
     Active Substance: NABUMETONE
     Indication: Pain
  18. HYDROCODONE [Concomitant]
     Active Substance: HYDROCODONE
     Indication: Back pain
  19. CLOBETASOL [Concomitant]
     Active Substance: CLOBETASOL
  20. TRAMADOL [Concomitant]
     Active Substance: TRAMADOL
  21. PROMETHAZINE [Concomitant]
     Active Substance: PROMETHAZINE HYDROCHLORIDE
  22. ALENDRONATE [Concomitant]
     Active Substance: ALENDRONATE SODIUM
  23. TASAPAM [Concomitant]
  24. THORAZINE [Concomitant]
     Active Substance: CHLORPROMAZINE
  25. WELBUTRINE [Concomitant]
  26. NAMBUMETONE [Concomitant]
  27. TOPIRAMATE [Concomitant]
     Active Substance: TOPIRAMATE

REACTIONS (13)
  - Lipase increased [Recovered/Resolved]
  - Alanine aminotransferase increased [Recovered/Resolved]
  - Aspartate aminotransferase increased [Recovered/Resolved]
  - Back pain [Recovering/Resolving]
  - Pain in extremity [Recovering/Resolving]
  - Abdominal pain [Unknown]
  - Blood urea increased [Unknown]
  - Red cell distribution width decreased [Unknown]
  - Albumin globulin ratio increased [Unknown]
  - Blood urea nitrogen/creatinine ratio increased [Unknown]
  - Intervertebral disc protrusion [Recovering/Resolving]
  - Alanine aminotransferase increased [Recovering/Resolving]
  - Nausea [Unknown]

NARRATIVE: CASE EVENT DATE: 20211220
